FAERS Safety Report 4286779-0 (Version None)
Quarter: 2004Q1

REPORT INFORMATION
  Report Type: 
  Country: None (occurrence: None)
  Receive Date: 20040206
  Receipt Date: 20031002
  Transmission Date: 20041129
  Serious: Yes (Other)
  Sender: FDA-Public Use
  Company Number: NL-ROCHE-348532

PATIENT
  Age: 24 Year
  Sex: Female
  Weight: 60 kg

DRUGS (3)
  1. LARIAM [Suspect]
     Indication: MALARIA PROPHYLAXIS
     Route: 048
     Dates: start: 20030912
  2. LARIAM [Suspect]
     Route: 048
     Dates: start: 20030919
  3. MICROGYNON 30 [Concomitant]
     Indication: CONTRACEPTION
     Route: 048
     Dates: start: 20030905, end: 20030921

REACTIONS (3)
  - METRORRHAGIA [None]
  - NAUSEA [None]
  - PYREXIA [None]
